FAERS Safety Report 19370396 (Version 1)
Quarter: 2021Q2

REPORT INFORMATION
  Report Type: Spontaneous
  Country: US (occurrence: US)
  Receive Date: 20210604
  Receipt Date: 20210604
  Transmission Date: 20210717
  Serious: No
  Sender: FDA-Public Use
  Company Number: US-STRIDES ARCOLAB LIMITED-2020SP016444

PATIENT
  Age: 78 Year
  Sex: Male

DRUGS (3)
  1. PEG 3350, SODIUM CHLORIDE, SODIUM BICARBONATE, POTASSIUM CHLORIDE [Suspect]
     Active Substance: POLYETHYLENE GLYCOL 3350\POTASSIUM CHLORIDE\SODIUM BICARBONATE\SODIUM CHLORIDE
     Indication: PRODUCT USED FOR UNKNOWN INDICATION
     Dosage: EVERY 10?15 MINUTES
     Route: 048
     Dates: start: 202012
  2. FUROSEMIDE. [Concomitant]
     Active Substance: FUROSEMIDE
     Dosage: REDUCED TO 2 DOSAGE FORM IN THE AFTERNOON
     Route: 065
  3. FUROSEMIDE. [Concomitant]
     Active Substance: FUROSEMIDE
     Indication: OEDEMA
     Dosage: 4 DOSAGE FORM IN THE AFTERNOON
     Route: 065

REACTIONS (1)
  - Drug ineffective [Unknown]
